FAERS Safety Report 19326254 (Version 1)
Quarter: 2021Q2

REPORT INFORMATION
  Report Type: Spontaneous
  Country: US (occurrence: US)
  Receive Date: 20210528
  Receipt Date: 20210528
  Transmission Date: 20210717
  Serious: No
  Sender: FDA-Public Use
  Company Number: US-PFIZER INC-2021438632

PATIENT
  Age: 56 Year
  Sex: Female
  Weight: 73.48 kg

DRUGS (5)
  1. ALPRAZOLAM. [Suspect]
     Active Substance: ALPRAZOLAM
     Indication: AGORAPHOBIA
  2. ALPRAZOLAM. [Suspect]
     Active Substance: ALPRAZOLAM
     Indication: MENOPAUSE
  3. PEPCID [Concomitant]
     Active Substance: FAMOTIDINE
     Indication: ANTACID THERAPY
  4. ALPRAZOLAM. [Suspect]
     Active Substance: ALPRAZOLAM
     Indication: ANXIETY
     Dosage: 1.5 MG, 4X/DAY, (TAKE 3/4 OF TABLET TO EQUAL 1.5MG EVERY 6 HOURS)
     Route: 048
  5. ALPRAZOLAM. [Suspect]
     Active Substance: ALPRAZOLAM
     Indication: PANIC ATTACK

REACTIONS (3)
  - Product coating issue [Unknown]
  - Drug ineffective [Unknown]
  - Dyspnoea [Unknown]

NARRATIVE: CASE EVENT DATE: 20210406
